FAERS Safety Report 8572059-1 (Version None)
Quarter: 2012Q3

REPORT INFORMATION
  Report Type: 
  Country: None (occurrence: None)
  Receive Date: 20120806
  Receipt Date: 20120801
  Transmission Date: 20120928
  Serious: Yes (Death, Hospitalization)
  Sender: FDA-Public Use
  Company Number: US-CELGENEUS-163-21880-12051959

PATIENT
  Sex: Male

DRUGS (13)
  1. REVLIMID [Suspect]
     Indication: MYELODYSPLASTIC SYNDROME
     Dosage: 5 MILLIGRAM
     Route: 048
     Dates: start: 20120424, end: 20120509
  2. ZOCOR [Concomitant]
     Dosage: 40 MILLIGRAM
     Route: 065
  3. VICODIN EXTRA STRENGTH [Concomitant]
     Indication: PAIN
     Dosage: 7.5 MILLIGRAM
     Route: 065
  4. FOLIC ACID [Concomitant]
     Dosage: 2 MILLIGRAM
     Route: 065
  5. COREG [Concomitant]
     Dosage: 12.5
     Route: 065
  6. ELAVIL [Concomitant]
     Dosage: 20 MILLIGRAM
     Route: 065
  7. APRESOLINE [Concomitant]
     Dosage: 150 MILLIGRAM
     Route: 048
  8. PREDNISONE [Concomitant]
     Dosage: 10 MILLIGRAM
     Route: 065
  9. COLACE [Concomitant]
     Dosage: 200
     Route: 065
  10. ZYLOPRIM [Concomitant]
     Dosage: 50 MILLIGRAM
     Route: 065
  11. NORVASC [Concomitant]
     Dosage: 10 MILLIGRAM
     Route: 065
  12. LASIX [Concomitant]
     Dosage: 20 MILLIGRAM
     Route: 048
  13. PHOSLO [Concomitant]
     Dosage: 667
     Route: 065

REACTIONS (4)
  - FALL [None]
  - DEATH [None]
  - ASTHENIA [None]
  - PANCYTOPENIA [None]
